FAERS Safety Report 6342116-9 (Version None)
Quarter: 2009Q3

REPORT INFORMATION
  Report Type: 
  Country: None (occurrence: None)
  Receive Date: 20090903
  Receipt Date: 20090903
  Transmission Date: 20100115
  Serious: Yes (Hospitalization, Other)
  Sender: FDA-Public Use
  Company Number: None

PATIENT
  Sex: Female
  Weight: 78.9259 kg

DRUGS (1)
  1. AMBIEN CR [Suspect]
     Indication: INSOMNIA
     Dosage: 1 TABLET DAILY NIGHT
     Dates: start: 20081203

REACTIONS (3)
  - AMNESIA [None]
  - DIZZINESS [None]
  - SOMNAMBULISM [None]
